FAERS Safety Report 25178557 (Version 2)
Quarter: 2025Q2

REPORT INFORMATION
  Report Type: Report from Study
  Country: US (occurrence: US)
  Receive Date: 20250409
  Receipt Date: 20250430
  Transmission Date: 20250716
  Serious: Yes (Other)
  Sender: OTSUKA
  Company Number: US-MMM-Otsuka-BERVOW0C

PATIENT
  Age: 41 Year
  Sex: Male

DRUGS (2)
  1. TOLVAPTAN [Suspect]
     Active Substance: TOLVAPTAN
     Indication: Congenital cystic kidney disease
     Dosage: 90 MG, QD (UPON WAKING)
     Route: 048
     Dates: start: 20240725, end: 20250315
  2. TOLVAPTAN [Suspect]
     Active Substance: TOLVAPTAN
     Dosage: 30 MG, QD (8 H LATER)
     Route: 048
     Dates: start: 20240725, end: 20250315

REACTIONS (2)
  - Renal transplant [Not Recovered/Not Resolved]
  - Chronic kidney disease [Unknown]

NARRATIVE: CASE EVENT DATE: 20250318
